FAERS Safety Report 8433896-7 (Version None)
Quarter: 2012Q2

REPORT INFORMATION
  Report Type: 
  Country: None (occurrence: None)
  Receive Date: 20120613
  Receipt Date: 20120601
  Transmission Date: 20120825
  Serious: No
  Sender: FDA-Public Use
  Company Number: US-ASTRAZENECA-2012SE36933

PATIENT
  Sex: Male

DRUGS (1)
  1. CRESTOR [Suspect]
     Route: 048

REACTIONS (9)
  - ANXIETY [None]
  - PARAESTHESIA [None]
  - HYPERTENSION [None]
  - RENAL DISORDER [None]
  - THINKING ABNORMAL [None]
  - PAIN [None]
  - HYPOAESTHESIA [None]
  - LIVER INJURY [None]
  - ANGER [None]
